FAERS Safety Report 10600130 (Version 2)
Quarter: 2019Q3

REPORT INFORMATION
  Report Type: Spontaneous
  Country: DE (occurrence: DE)
  Receive Date: 20141122
  Receipt Date: 20190903
  Transmission Date: 20191004
  Serious: Yes (Other)
  Sender: FDA-Public Use
  Company Number: DE-DRREDDYS-GER/GER/14/0044498

PATIENT
  Age: 33 Year
  Sex: Female
  Weight: 97 kg

DRUGS (15)
  1. ADALAT [Concomitant]
     Active Substance: NIFEDIPINE
     Indication: TOCOLYSIS
     Route: 042
  2. DAS GESUNDE PLUS - FOLSAURE 600 [Concomitant]
     Indication: PROPHYLAXIS OF NEURAL TUBE DEFECT
     Route: 048
     Dates: start: 20130702, end: 20131217
  3. AZATHIOPRINE. [Suspect]
     Active Substance: AZATHIOPRINE
     Indication: PROPHYLAXIS AGAINST TRANSPLANT REJECTION
     Dosage: 50 MG, 2X/DAY (BID)
     Route: 048
     Dates: start: 20130702, end: 20140114
  4. PROGRAF [Suspect]
     Active Substance: TACROLIMUS\TACROLIMUS ANHYDROUS
     Indication: PROPHYLAXIS AGAINST TRANSPLANT REJECTION
     Dosage: 5.5 [MG/D (3-0-2.5 MG/D)]
     Route: 048
     Dates: start: 2007, end: 20140114
  5. AZATHIOPRINE. [Suspect]
     Active Substance: AZATHIOPRINE
     Dosage: 50 MG/D
     Route: 048
     Dates: start: 2012, end: 201307
  6. DOPEGYT [Suspect]
     Active Substance: METHYLDOPA
     Indication: RENAL HYPERTENSION
     Dosage: 250 MG, 2X/DAY (BID)
     Route: 048
     Dates: start: 20130702, end: 20140114
  7. LEVOTHYROXINE SODIUM. [Concomitant]
     Active Substance: LEVOTHYROXINE SODIUM
     Indication: HYPOTHYROIDISM
     Dosage: 12.5 MCG, 2X/DAY (BID)
     Route: 048
     Dates: start: 20130702, end: 20140114
  8. BELOC-ZOK COMP [Concomitant]
     Active Substance: HYDROCHLOROTHIAZIDE\METOPROLOL SUCCINATE
     Indication: RENAL HYPERTENSION
     Dosage: 70.75 [MG/D (47.5-0-23.75)]
     Route: 048
     Dates: start: 20140114, end: 20140114
  9. METOPROLOL. [Suspect]
     Active Substance: METOPROLOL
     Route: 048
     Dates: start: 2012, end: 201307
  10. AMLODIPINE [Concomitant]
     Active Substance: AMLODIPINE BESYLATE
     Indication: RENAL HYPERTENSION
     Dosage: 7.5 [MG/D (2.5-0-5)]
     Route: 048
  11. BETAMETHASONE. [Concomitant]
     Active Substance: BETAMETHASONE
     Indication: MATERNAL THERAPY TO ENHANCE FOETAL LUNG MATURITY
     Dosage: IN WEEK 25+3, 25+4 AND AGAIN IN WEEK 28+0
     Route: 065
  12. PARTUSISTEN [Concomitant]
     Active Substance: FENOTEROL
     Indication: TOCOLYSIS
     Route: 042
     Dates: start: 20140114, end: 20140114
  13. METOPROLOL. [Suspect]
     Active Substance: METOPROLOL
     Indication: RENAL HYPERTENSION
     Dosage: 142.5 [MG/D (95-0-47.5)]
     Route: 048
     Dates: start: 20130702, end: 20131217
  14. DEKRISTOL 20000 I.E. [Concomitant]
     Active Substance: CHOLECALCIFEROL
     Indication: VITAMIN SUPPLEMENTATION
     Route: 048
     Dates: start: 20130702, end: 20131217
  15. AMPICILLIN [Concomitant]
     Active Substance: AMPICILLIN
     Indication: ANTIBIOTIC PROPHYLAXIS
     Route: 065
     Dates: start: 20140114, end: 20140114

REACTIONS (7)
  - Polyhydramnios [Recovered/Resolved]
  - Premature delivery [Unknown]
  - Premature labour [Unknown]
  - Preterm premature rupture of membranes [Unknown]
  - Maternal exposure during pregnancy [Unknown]
  - Cervical incompetence [Unknown]
  - Caesarean section [Unknown]

NARRATIVE: CASE EVENT DATE: 20130702
